FAERS Safety Report 9989574 (Version 1)
Quarter: 2014Q1

REPORT INFORMATION
  Report Type: Spontaneous
  Country: US (occurrence: US)
  Receive Date: 20140310
  Receipt Date: 20140310
  Transmission Date: 20141002
  Serious: No
  Sender: FDA-Public Use
  Company Number: US-ABBVIE-13P-163-1136581-00

PATIENT
  Age: 81 Year
  Sex: Female
  Weight: 96.25 kg

DRUGS (10)
  1. HUMIRA [Suspect]
     Indication: RHEUMATOID ARTHRITIS
     Dates: start: 2009
  2. LYRICA [Concomitant]
     Indication: RESTLESS LEGS SYNDROME
  3. CELEBREX [Concomitant]
     Indication: RHEUMATOID ARTHRITIS
  4. RANITIDINE [Concomitant]
     Indication: GASTRIC DISORDER
  5. WELLBUTRIN [Concomitant]
     Indication: AFFECTIVE DISORDER
  6. DIOVAN [Concomitant]
     Indication: HYPERTENSION
  7. DIOVAN [Concomitant]
     Indication: BLOOD CHOLESTEROL INCREASED
  8. ADVAIR [Concomitant]
     Indication: CHRONIC OBSTRUCTIVE PULMONARY DISEASE
  9. SIMVASTATIN [Concomitant]
     Indication: BLOOD CHOLESTEROL INCREASED
  10. ASPIRIN [Concomitant]
     Indication: PRODUCT USED FOR UNKNOWN INDICATION

REACTIONS (4)
  - Wound [Recovered/Resolved]
  - Local swelling [Recovered/Resolved]
  - Device malfunction [Unknown]
  - Incorrect dose administered [Unknown]
